FAERS Safety Report 4305049-5 (Version None)
Quarter: 2004Q1

REPORT INFORMATION
  Report Type: 
  Country: None (occurrence: None)
  Receive Date: 20040224
  Receipt Date: 20040209
  Transmission Date: 20041129
  Serious: Yes (Other)
  Sender: FDA-Public Use
  Company Number: US-JNJFOC-20040102456

PATIENT
  Age: 49 Year
  Sex: Male
  Weight: 76.2043 kg

DRUGS (13)
  1. REMICADE [Suspect]
     Indication: CROHN'S DISEASE
     Dosage: INTRAVENOUS
     Route: 042
     Dates: start: 20011001
  2. REMICADE [Suspect]
     Dosage: 300 MG, 1 IN 1 TOTAL, INTRAVENOUS
     Route: 042
     Dates: start: 20030710
  3. REMICADE [Suspect]
     Dosage: 300 MG, 1 IN 1 TOTAL, INTRAVENOUS
     Route: 042
     Dates: start: 20030910
  4. REMICADE [Suspect]
     Dosage: 300 MG, 1 IN 1 TOTAL, INTRAVENOUS
     Route: 042
     Dates: start: 20031110
  5. REMICADE [Suspect]
     Dosage: 300 MG, 1 IN 1 TOTAL, INTRAVENOUS
     Route: 042
     Dates: start: 20040203
  6. PREDNISONE [Concomitant]
  7. IMURAN [Concomitant]
  8. ASPIRIN [Concomitant]
  9. ACIPHEX [Concomitant]
  10. ATENOLOL [Concomitant]
  11. ZESTRIL [Concomitant]
  12. LEXAPRO (ALL OTHER THERAPEUTIC PRODUCTS) [Concomitant]
  13. PEPCID [Concomitant]

REACTIONS (3)
  - OESOPHAGEAL CANDIDIASIS [None]
  - OESOPHAGITIS ULCERATIVE [None]
  - SYSTEMIC MYCOSIS [None]
